FAERS Safety Report 7207162-1 (Version None)
Quarter: 2011Q1

REPORT INFORMATION
  Report Type: 
  Country: None (occurrence: None)
  Receive Date: 20110103
  Receipt Date: 20101230
  Transmission Date: 20110831
  Serious: Yes (Life-Threatening, Hospitalization)
  Sender: FDA-Public Use
  Company Number: FR-ROCHE-727852

PATIENT
  Sex: Female
  Weight: 60 kg

DRUGS (6)
  1. CARBOPLATIN [Suspect]
     Dosage: DOSE LEVEL:6 AUC. DATE OF LAST DOSE PRIOR TO SAE:10 SEPTEMBER 2010. DOSE FORM:VIALS.
     Route: 042
     Dates: start: 20100618
  2. DOCETAXEL [Suspect]
     Dosage: DOSE LEVEL:75 MG/M2.DATE OF LAST DOSE PRIOR TO SAE:10 SEPTEMBER 2010.DOSE FORM:VIALS.
     Route: 042
     Dates: start: 20100618
  3. DOCETAXEL [Suspect]
     Dosage: DOSE REDUCED BY ONE DOSE LEVEL. DOSE LEVEL:60 MG/M2
     Route: 042
  4. TRASTUZUMAB [Suspect]
     Dosage: DOSE LEVEL:6 MG/KG. DATE OF LAST DOSE PRIOR TO SAE:10 SEPTEMBER 2010. DOSE FORM:VIALS
     Route: 042
     Dates: start: 20100618
  5. CARBOPLATIN [Suspect]
     Dosage: DOSE REDUCED BY ONE DOSE LEVEL. DOSE LEVEL:5 AUC
     Route: 042
  6. BEVACIZUMAB [Suspect]
     Dosage: DOSE LEVEL:15 MG/KG. DATE OF LAST DOSE PRIOR TO SAE:10 SEPTEMBER 2010. DOSE FORM:VIALS
     Route: 042
     Dates: start: 20100618

REACTIONS (9)
  - COLITIS [None]
  - FEBRILE NEUTROPENIA [None]
  - NAUSEA [None]
  - TORSADE DE POINTES [None]
  - LIPASE INCREASED [None]
  - HEPATOBILIARY DISEASE [None]
  - BLOOD CREATININE INCREASED [None]
  - PYREXIA [None]
  - VENTRICULAR DYSFUNCTION [None]
